FAERS Safety Report 9551940 (Version 1)
Quarter: 2013Q3

REPORT INFORMATION
  Report Type: Spontaneous
  Country: US (occurrence: None)
  Receive Date: 20130724
  Receipt Date: 20130724
  Transmission Date: 20140515
  Serious: Yes (Hospitalization)
  Sender: FDA-Public Use
  Company Number: PHEH2012US024880

PATIENT
  Age: 47 Year
  Sex: Female

DRUGS (1)
  1. GLEEVEC (IMATINIB) [Suspect]
     Indication: LYMPHOCYTIC LEUKAEMIA
     Route: 048
     Dates: start: 20100111, end: 20120920

REACTIONS (2)
  - Lymphocytic leukaemia [None]
  - Malignant neoplasm progression [None]
